FAERS Safety Report 7777150-5 (Version None)
Quarter: 2011Q3

REPORT INFORMATION
  Report Type: 
  Country: None (occurrence: None)
  Receive Date: 20110926
  Receipt Date: 20110912
  Transmission Date: 20111222
  Serious: Yes (Hospitalization, Other)
  Sender: FDA-Public Use
  Company Number: US-BAYER-201013997NA

PATIENT
  Age: 38 Year
  Sex: Female
  Weight: 88.435 kg

DRUGS (7)
  1. ACETAMINOPHEN [Concomitant]
  2. SYNTHROID [Concomitant]
  3. IBUPROFEN [Concomitant]
     Dosage: UNK
     Dates: end: 20051228
  4. BENADRYL [Concomitant]
  5. YASMIN [Suspect]
     Indication: DYSFUNCTIONAL UTERINE BLEEDING
     Dosage: UNK
     Route: 048
     Dates: start: 20010101, end: 20051201
  6. LEVOTHYROXINE SODIUM [Concomitant]
  7. YASMIN [Suspect]
     Indication: MENSTRUATION IRREGULAR

REACTIONS (7)
  - BILIARY DYSKINESIA [None]
  - CHOLECYSTITIS CHRONIC [None]
  - NAUSEA [None]
  - DIARRHOEA [None]
  - PULMONARY EMBOLISM [None]
  - ABDOMINAL PAIN UPPER [None]
  - PULMONARY HYPERTENSION [None]
